FAERS Safety Report 22344561 (Version 1)
Quarter: 2023Q2

REPORT INFORMATION
  Report Type: Spontaneous
  Country: CN (occurrence: CN)
  Receive Date: 20230519
  Receipt Date: 20230519
  Transmission Date: 20230722
  Serious: Yes (Hospitalization)
  Sender: FDA-Public Use
  Company Number: CN-JNJFOC-20230540821

PATIENT
  Age: 4 Year
  Sex: Male

DRUGS (3)
  1. CHILDRENS MOTRIN [Suspect]
     Active Substance: IBUPROFEN
     Indication: Pyrexia
     Route: 048
     Dates: start: 20230419, end: 20230420
  2. CEFTIZOXIME SODIUM [Suspect]
     Active Substance: CEFTIZOXIME SODIUM
     Indication: Pneumonia
     Route: 041
     Dates: start: 20230419, end: 20230420
  3. METHYLPREDNISOLONE SODIUM SUCCINATE [Concomitant]
     Active Substance: METHYLPREDNISOLONE SODIUM SUCCINATE
     Indication: Laryngitis
     Route: 041
     Dates: start: 20230419, end: 20230419

REACTIONS (5)
  - Flushing [Recovering/Resolving]
  - Oedema [Recovering/Resolving]
  - Cyanosis [Recovering/Resolving]
  - Blood pressure decreased [Recovering/Resolving]
  - Hepatic function abnormal [Recovering/Resolving]

NARRATIVE: CASE EVENT DATE: 20230419
